FAERS Safety Report 8793823 (Version 2)
Quarter: 2012Q4

REPORT INFORMATION
  Report Type: 
  Country: US (occurrence: US)
  Receive Date: 20120917
  Receipt Date: 20121113
  Transmission Date: 20130627
  Serious: No
  Sender: FDA-Public Use
  Company Number: US-ASTRAZENECA-2012SE69992

PATIENT
  Age: 83 Year
  Sex: Female

DRUGS (1)
  1. TOPROL XL [Suspect]
     Indication: CARDIOVASCULAR DISORDER
     Route: 048

REACTIONS (2)
  - Aphagia [Recovered/Resolved]
  - Chest discomfort [Recovered/Resolved]
